FAERS Safety Report 10173111 (Version 2)
Quarter: 2015Q4

REPORT INFORMATION
  Report Type: Report from Study
  Country: CA (occurrence: CA)
  Receive Date: 20140515
  Receipt Date: 20151014
  Transmission Date: 20160304
  Serious: Yes (Other)
  Sender: FDA-Public Use
  Company Number: CA-ROCHE-1400736

PATIENT
  Age: 45 Year
  Sex: Male
  Weight: 86.3 kg

DRUGS (13)
  1. ACETAMINOPHEN. [Concomitant]
     Active Substance: ACETAMINOPHEN
     Indication: PREMEDICATION
     Route: 048
     Dates: start: 20100121
  2. PANTOPRAZOLE [Concomitant]
     Active Substance: PANTOPRAZOLE SODIUM
  3. DIPHENHYDRAMINE. [Concomitant]
     Active Substance: DIPHENHYDRAMINE
     Indication: PREMEDICATION
     Route: 048
     Dates: start: 20151006
  4. APO-PREDNISONE [Concomitant]
     Active Substance: PREDNISONE
  5. RANITIDINE [Concomitant]
     Active Substance: RANITIDINE\RANITIDINE HYDROCHLORIDE
  6. RITUXAN [Suspect]
     Active Substance: RITUXIMAB
     Indication: RHEUMATOID ARTHRITIS
     Dosage: FREQUENCY: 15 DAYS. LAST DOSE PRIOR TO SAE 29/AUG/2012.
     Route: 042
     Dates: start: 20100121
  7. ARAVA [Concomitant]
     Active Substance: LEFLUNOMIDE
  8. OMEGA 3 [Concomitant]
     Active Substance: OMEGA-3 FATTY ACIDS
  9. ELTROXIN [Concomitant]
     Active Substance: LEVOTHYROXINE
  10. VITAMIN B12 [Concomitant]
     Active Substance: CYANOCOBALAMIN
  11. METHYLPREDNISOLONE. [Concomitant]
     Active Substance: METHYLPREDNISOLONE
     Indication: PREMEDICATION
     Route: 042
     Dates: start: 20100121
  12. DOMPERIDONE [Concomitant]
     Active Substance: DOMPERIDONE
  13. CEFUROXIME. [Concomitant]
     Active Substance: CEFUROXIME
     Route: 065
     Dates: end: 201403

REACTIONS (4)
  - Cyanosis [Unknown]
  - Blood iron decreased [Unknown]
  - Tachycardia [Unknown]
  - Weight decreased [Unknown]

NARRATIVE: CASE EVENT DATE: 20151009
